FAERS Safety Report 8611591-9 (Version None)
Quarter: 2012Q3

REPORT INFORMATION
  Report Type: 
  Country: None (occurrence: None)
  Receive Date: 20120822
  Receipt Date: 20120817
  Transmission Date: 20120928
  Serious: Yes (Hospitalization)
  Sender: FDA-Public Use
  Company Number: PHHY2010NO36746

PATIENT
  Sex: Male
  Weight: 18.6 kg

DRUGS (6)
  1. ILARIS [Suspect]
     Indication: CHRONIC INFANTILE NEUROLOGICAL CUTANEOUS AND ARTICULAR SYNDROME
     Dosage: 75 MG EVERY 8 WEEKS
     Route: 058
     Dates: start: 20100215
  2. ILARIS [Suspect]
     Indication: CRYOPYRIN ASSOCIATED PERIODIC SYNDROME
  3. PENICILLIN [Concomitant]
     Indication: DEPENDENT RUBOR
  4. DICLOXACILLIN [Concomitant]
     Indication: ERYSIPELAS
     Dates: start: 20100530
  5. PENICILLIN [Concomitant]
     Indication: PYREXIA
  6. PENICILLIN [Concomitant]
     Indication: SWELLING
     Dates: start: 20100527

REACTIONS (7)
  - ERYSIPELAS [None]
  - INJECTION SITE ERYTHEMA [None]
  - PAIN IN EXTREMITY [None]
  - INTRACRANIAL PRESSURE INCREASED [None]
  - PAPILLOEDEMA [None]
  - PYREXIA [None]
  - INJECTION SITE SWELLING [None]
